FAERS Safety Report 7300853-3 (Version None)
Quarter: 2011Q1

REPORT INFORMATION
  Report Type: 
  Country: None (occurrence: None)
  Receive Date: 20110103
  Receipt Date: 20100603
  Transmission Date: 20110831
  Serious: Yes (Hospitalization)
  Sender: FDA-Public Use
  Company Number: US-004550

PATIENT
  Age: 84 Year
  Sex: Male
  Weight: 102 kg

DRUGS (7)
  1. LIPITOR [Concomitant]
  2. ASPIRIN [Concomitant]
  3. LISINOPRIL [Concomitant]
  4. MULTIHANCE [Suspect]
     Indication: TRANSIENT ISCHAEMIC ATTACK
     Dosage: 18ML ONCE INTRAVENOUS
     Route: 042
     Dates: start: 20100413, end: 20100413
  5. MULTIHANCE [Suspect]
     Indication: NUCLEAR MAGNETIC RESONANCE IMAGING BRAIN
     Dosage: 18ML ONCE INTRAVENOUS
     Route: 042
     Dates: start: 20100413, end: 20100413
  6. PLAVIX [Concomitant]
  7. ATENOLOL [Concomitant]

REACTIONS (1)
  - ANAPHYLACTIC REACTION [None]
